FAERS Safety Report 16091069 (Version 1)
Quarter: 2019Q1

REPORT INFORMATION
  Report Type: Report from Study
  Country: US (occurrence: US)
  Receive Date: 20190319
  Receipt Date: 20190319
  Transmission Date: 20190418
  Serious: Yes (Hospitalization, Other)
  Sender: FDA-Public Use
  Company Number: US-GILEAD-2019-0397191

PATIENT
  Age: 76 Year
  Sex: Male

DRUGS (1)
  1. RANOLAZINE. [Suspect]
     Active Substance: RANOLAZINE
     Indication: ANGINA PECTORIS
     Dosage: 1000 MG, BID
     Route: 048

REACTIONS (5)
  - Coronary artery occlusion [Unknown]
  - Angioplasty [Unknown]
  - Dyspnoea [Unknown]
  - Catheterisation cardiac [Unknown]
  - Stent placement [Unknown]

NARRATIVE: CASE EVENT DATE: 20190301
